FAERS Safety Report 9120051 (Version 1)
Quarter: 2013Q1

REPORT INFORMATION
  Report Type: Spontaneous
  Country: MX (occurrence: MX)
  Receive Date: 20130226
  Receipt Date: 20130226
  Transmission Date: 20140127
  Serious: Yes (Other)
  Sender: FDA-Public Use
  Company Number: PHHY2013MX018437

PATIENT
  Age: 21 Year
  Sex: Female

DRUGS (1)
  1. TEGRETOL 400 LC [Suspect]
     Dosage: 2.5 DF, DAILY
     Route: 048

REACTIONS (3)
  - Abortion [Unknown]
  - Choking [Unknown]
  - Abnormal behaviour [Unknown]
